FAERS Safety Report 17672813 (Version 1)
Quarter: 2020Q2

REPORT INFORMATION
  Report Type: Spontaneous
  Country: FR (occurrence: FR)
  Receive Date: 20200416
  Receipt Date: 20200416
  Transmission Date: 20200713
  Serious: No
  Sender: FDA-Public Use
  Company Number: FR-ELI_LILLY_AND_COMPANY-FR202004005377

PATIENT
  Age: 26 Year
  Sex: Male
  Weight: 77 kg

DRUGS (3)
  1. DEPAKOTE [Suspect]
     Active Substance: DIVALPROEX SODIUM
     Indication: MENTAL DISORDER
     Dosage: UNK, UNKNOWN
     Route: 048
     Dates: start: 201812, end: 20200121
  2. ZYPREXA [Suspect]
     Active Substance: OLANZAPINE
     Indication: MENTAL DISORDER
     Dosage: UNK UNK, UNKNOWN
     Route: 048
     Dates: start: 201702
  3. SOLIAN [Suspect]
     Active Substance: AMISULPRIDE
     Indication: MENTAL DISORDER
     Dosage: UNK, UNKNOWN
     Route: 048
     Dates: start: 20191218

REACTIONS (1)
  - Coagulation factor decreased [Not Recovered/Not Resolved]

NARRATIVE: CASE EVENT DATE: 20200116
